FAERS Safety Report 16232928 (Version 1)
Quarter: 2019Q2

REPORT INFORMATION
  Report Type: Spontaneous
  Country: US (occurrence: US)
  Receive Date: 20190423
  Receipt Date: 20190423
  Transmission Date: 20190711
  Serious: No
  Sender: FDA-Public Use
  Company Number: None

PATIENT
  Age: 68 Year
  Sex: Female
  Weight: 47.25 kg

DRUGS (2)
  1. TRADER JOE^S MOISTURIZING CREME [Suspect]
     Active Substance: DIMETHICONE
     Indication: DRY SKIN
     Route: 061
  2. DERMASIL [Suspect]
     Active Substance: DIMETHICONE
     Indication: DRY SKIN
     Route: 061

REACTIONS (3)
  - Urticaria [None]
  - Eye swelling [None]
  - Pruritus [None]
